FAERS Safety Report 4954614-0 (Version None)
Quarter: 2006Q1

REPORT INFORMATION
  Report Type: 
  Country: None (occurrence: None)
  Receive Date: 20060327
  Receipt Date: 20060321
  Transmission Date: 20060701
  Serious: Yes (Other)
  Sender: FDA-Public Use
  Company Number: BR-ROCHE-441478

PATIENT
  Age: 77 Year
  Sex: Male
  Weight: 80.5 kg

DRUGS (3)
  1. VESANOID [Suspect]
     Route: 048
     Dates: start: 20060217
  2. VESANOID [Suspect]
     Route: 048
     Dates: start: 20060127, end: 20060216
  3. IDARUBICIN HCL [Concomitant]
     Route: 048
     Dates: end: 20060215

REACTIONS (1)
  - PROSTATIC SPECIFIC ANTIGEN INCREASED [None]
